FAERS Safety Report 19132818 (Version 1)
Quarter: 2021Q2

REPORT INFORMATION
  Report Type: Spontaneous
  Country: CA (occurrence: CA)
  Receive Date: 20210413
  Receipt Date: 20210413
  Transmission Date: 20210717
  Serious: Yes (Death)
  Sender: FDA-Public Use
  Company Number: CA-PFIZER INC-2021391376

PATIENT
  Age: 47 Year
  Sex: Female

DRUGS (7)
  1. MIDAZOLAM. [Suspect]
     Active Substance: MIDAZOLAM
     Dosage: 1 MG
     Route: 042
  2. OZEMPIC [Concomitant]
     Active Substance: SEMAGLUTIDE
  3. AVAMYS [Concomitant]
     Active Substance: FLUTICASONE FUROATE
  4. JARDIANCE [Concomitant]
     Active Substance: EMPAGLIFLOZIN
  5. PROPOFOL. [Suspect]
     Active Substance: PROPOFOL
     Dosage: 200 MG
     Route: 042
  6. REACTINE [CETIRIZINE HYDROCHLORIDE] [Concomitant]
     Active Substance: CETIRIZINE HYDROCHLORIDE
  7. LISINOPRIL. [Concomitant]
     Active Substance: LISINOPRIL

REACTIONS (1)
  - Anaphylactic reaction [Fatal]
